FAERS Safety Report 8555455-8 (Version None)
Quarter: 2012Q3

REPORT INFORMATION
  Report Type: 
  Country: None (occurrence: None)
  Receive Date: 20120731
  Receipt Date: 20111213
  Transmission Date: 20120928
  Serious: No
  Sender: FDA-Public Use
  Company Number: US-ASTRAZENECA-2011SE18200

PATIENT
  Age: 37 Year
  Sex: Female

DRUGS (9)
  1. SEROQUEL XR [Suspect]
     Route: 048
     Dates: start: 20110101
  2. SEROQUEL XR [Suspect]
     Route: 048
  3. SEROQUEL XR [Suspect]
     Route: 048
     Dates: start: 20110101
  4. SEROQUEL XR [Suspect]
     Route: 048
  5. LEXAPRO [Concomitant]
     Indication: MAJOR DEPRESSION
     Dates: end: 20111101
  6. CELEXA [Concomitant]
  7. SEROQUEL XR [Suspect]
     Indication: SCHIZOAFFECTIVE DISORDER
     Route: 048
  8. SEROQUEL XR [Suspect]
     Indication: MAJOR DEPRESSION
     Route: 048
  9. THYROID MEDICATION [Concomitant]

REACTIONS (6)
  - TREATMENT NONCOMPLIANCE [None]
  - SOMNOLENCE [None]
  - DRUG DOSE OMISSION [None]
  - AGITATION [None]
  - THYROID DISORDER [None]
  - AGGRESSION [None]
